FAERS Safety Report 8118461-3 (Version None)
Quarter: 2012Q1

REPORT INFORMATION
  Report Type: 
  Country: None (occurrence: None)
  Receive Date: 20120207
  Receipt Date: 20120202
  Transmission Date: 20120608
  Serious: Yes (Other)
  Sender: FDA-Public Use
  Company Number: CA-ABBOTT-11P-028-0857781-00

PATIENT
  Sex: Male
  Weight: 97.61 kg

DRUGS (2)
  1. LUPRON DEPOT [Suspect]
     Indication: PROSTATE CANCER
     Route: 030
     Dates: start: 20100204
  2. ACETYLSALICYLIC ACID SRT [Concomitant]
     Indication: PRODUCT USED FOR UNKNOWN INDICATION
     Dosage: 1/2 TABLET EVERY 2 TO 3 DAYS

REACTIONS (4)
  - CHROMATURIA [None]
  - URINARY RETENTION [None]
  - DYSURIA [None]
  - URINE ABNORMALITY [None]
